FAERS Safety Report 9608248 (Version 1)
Quarter: 2013Q4

REPORT INFORMATION
  Report Type: Report from Study
  Country: US (occurrence: US)
  Receive Date: 20131009
  Receipt Date: 20131009
  Transmission Date: 20140711
  Serious: Yes (Other)
  Sender: FDA-Public Use
  Company Number: US-US-EMD SERONO, INC.-7241535

PATIENT
  Age: 42 Year
  Sex: Male

DRUGS (2)
  1. REBIF [Suspect]
     Indication: MULTIPLE SCLEROSIS
     Route: 058
     Dates: start: 20110603
  2. REBIF [Suspect]
     Route: 058

REACTIONS (5)
  - Blood glucose increased [Recovering/Resolving]
  - Increased appetite [Not Recovered/Not Resolved]
  - Multiple sclerosis relapse [Unknown]
  - Hepatic enzyme increased [Recovered/Resolved]
  - Influenza like illness [Recovered/Resolved]
